FAERS Safety Report 24280612 (Version 1)
Quarter: 2024Q3

REPORT INFORMATION
  Report Type: Spontaneous
  Country: US (occurrence: None)
  Receive Date: 20240904
  Receipt Date: 20240904
  Transmission Date: 20241016
  Serious: No
  Sender: ASTRAZENECA
  Company Number: 2024A195210

PATIENT
  Sex: Female

DRUGS (2)
  1. LYNPARZA [Suspect]
     Active Substance: OLAPARIB
     Indication: Retroperitoneal cancer
     Dosage: 300 MG TWICE A DAY FOR ABOUT 2.5 MONTHS
     Route: 048
  2. AVASTIN [Concomitant]
     Active Substance: BEVACIZUMAB

REACTIONS (15)
  - Fatigue [Not Recovered/Not Resolved]
  - Malaise [Not Recovered/Not Resolved]
  - Lethargy [Not Recovered/Not Resolved]
  - Discomfort [Not Recovered/Not Resolved]
  - Dizziness [Unknown]
  - Decreased appetite [Unknown]
  - Rhinorrhoea [Unknown]
  - Head discomfort [Unknown]
  - Diarrhoea [Unknown]
  - Headache [Unknown]
  - Plicated tongue [Unknown]
  - Taste disorder [Unknown]
  - Insomnia [Unknown]
  - Impaired quality of life [Unknown]
  - Nasal congestion [Unknown]
